FAERS Safety Report 11971904 (Version 1)
Quarter: 2016Q1

REPORT INFORMATION
  Report Type: Spontaneous
  Country: US (occurrence: US)
  Receive Date: 20160128
  Receipt Date: 20160128
  Transmission Date: 20160526
  Serious: Yes (Other)
  Sender: FDA-Public Use
  Company Number: US-SA-2016SA011900

PATIENT
  Age: 66 Year
  Sex: Female

DRUGS (2)
  1. LANTUS SOLOSTAR [Suspect]
     Active Substance: INSULIN GLARGINE
     Indication: TYPE 2 DIABETES MELLITUS
     Dosage: DOSE-46AM/45PM
     Route: 065
     Dates: start: 2011
  2. SOLOSTAR [Concomitant]
     Active Substance: DEVICE
     Indication: TYPE 2 DIABETES MELLITUS
     Dates: start: 2011

REACTIONS (9)
  - Cardiac failure [Unknown]
  - Dyspnoea [Unknown]
  - Gait disturbance [Unknown]
  - Hypotension [Unknown]
  - Heart rate increased [Unknown]
  - Blood creatine increased [Unknown]
  - Oedema peripheral [Unknown]
  - Dehydration [Unknown]
  - Drug administration error [Unknown]
